FAERS Safety Report 5488755-9 (Version None)
Quarter: 2007Q4

REPORT INFORMATION
  Report Type: 
  Country: None (occurrence: None)
  Receive Date: 20071017
  Receipt Date: 20071012
  Transmission Date: 20080405
  Serious: Yes (Life-Threatening)
  Sender: FDA-Public Use
  Company Number: AU-BOEHRINGER INGELHEIM PHARMACEUTICALS, INC.-2007-BP-22603AU

PATIENT
  Age: 94 Year
  Sex: Female

DRUGS (6)
  1. ASPIRIN AND DIPYRIDAMOLE [Suspect]
     Indication: TRANSIENT ISCHAEMIC ATTACK
     Dosage: 400/50 MG/MG
     Route: 048
     Dates: start: 20070306, end: 20070408
  2. ACTONEL COMBI [Concomitant]
     Route: 048
  3. CALCITRIOL [Concomitant]
  4. NEXIUM [Concomitant]
     Route: 048
  5. PREDNISOLONE [Concomitant]
  6. SEREPAX [Concomitant]
     Route: 048

REACTIONS (1)
  - GASTROINTESTINAL HAEMORRHAGE [None]
